FAERS Safety Report 17365050 (Version 1)
Quarter: 2020Q1

REPORT INFORMATION
  Report Type: Spontaneous
  Country: US (occurrence: US)
  Receive Date: 20200204
  Receipt Date: 20200204
  Transmission Date: 20200409
  Serious: No
  Sender: FDA-Public Use
  Company Number: US-ELI_LILLY_AND_COMPANY-US202002000837

PATIENT
  Age: 81 Year
  Sex: Male

DRUGS (2)
  1. HUMULIN R U-500 [Suspect]
     Active Substance: INSULIN HUMAN
     Dosage: 35 U, EACH EVENING
     Route: 058
     Dates: start: 2012
  2. HUMULIN R U-500 [Suspect]
     Active Substance: INSULIN HUMAN
     Indication: DIABETES MELLITUS
     Dosage: 40 U, EACH MORNING
     Route: 058
     Dates: start: 2012

REACTIONS (2)
  - Incorrect dose administered [Not Recovered/Not Resolved]
  - Blood glucose increased [Not Recovered/Not Resolved]
